FAERS Safety Report 23634192 (Version 1)
Quarter: 2024Q1

REPORT INFORMATION
  Report Type: Spontaneous
  Country: JP (occurrence: JP)
  Receive Date: 20240314
  Receipt Date: 20240314
  Transmission Date: 20240410
  Serious: Yes (Other)
  Sender: FDA-Public Use
  Company Number: JP-MEITHEAL-2024MPLIT00056

PATIENT
  Age: 65 Year
  Sex: Male

DRUGS (12)
  1. AZACITIDINE [Suspect]
     Active Substance: AZACITIDINE
     Indication: Peripheral T-cell lymphoma unspecified
     Dosage: FOR 7 CONSECUTIVE DAYS, EVERY 28 DAYS
     Route: 065
  2. ETOPOSIDE [Suspect]
     Active Substance: ETOPOSIDE
     Indication: Peripheral T-cell lymphoma unspecified
     Dosage: FOR 3 DAYS
     Route: 065
  3. MELPHALAN HYDROCHLORIDE [Suspect]
     Active Substance: MELPHALAN\MELPHALAN HYDROCHLORIDE
     Indication: Peripheral T-cell lymphoma unspecified
     Dosage: FOR 1 DAY
     Route: 065
  4. CYCLOPHOSPHAMIDE [Suspect]
     Active Substance: CYCLOPHOSPHAMIDE
     Indication: Peripheral T-cell lymphoma unspecified
     Dosage: FOR 2 DAYS/EVERY THREE WEEKS
     Route: 065
  5. DEXAMETHASONE [Suspect]
     Active Substance: DEXAMETHASONE
     Indication: Peripheral T-cell lymphoma unspecified
     Dosage: FOR 4 DAYS
     Route: 065
  6. DOXORUBICIN [Concomitant]
     Active Substance: DOXORUBICIN
     Indication: Peripheral T-cell lymphoma unspecified
     Dosage: CHOP REGIMEN FOR EVERY 3 WEEKS
     Route: 065
  7. VINCRISTINE [Concomitant]
     Active Substance: VINCRISTINE
     Indication: Peripheral T-cell lymphoma unspecified
     Dosage: EVERY THREE WEEKS
     Route: 065
  8. PREDNISOLONE [Concomitant]
     Active Substance: PREDNISOLONE
     Indication: Peripheral T-cell lymphoma unspecified
     Dosage: EVERY THREE WEEKS
     Route: 065
  9. BUSULFAN [Concomitant]
     Active Substance: BUSULFAN
     Indication: Peripheral T-cell lymphoma unspecified
     Dosage: FOR 3 DAYS
     Route: 042
  10. CYTARABINE [Concomitant]
     Active Substance: CYTARABINE
     Indication: Peripheral T-cell lymphoma unspecified
     Route: 065
  11. INSULIN NOS [Concomitant]
     Active Substance: INSULIN NOS
     Indication: Type 2 diabetes mellitus
     Dosage: FOR THE PAST 2 YEARS
     Route: 058
  12. BRENTUXIMAB VEDOTIN [Concomitant]
     Active Substance: BRENTUXIMAB VEDOTIN
     Indication: Peripheral T-cell lymphoma unspecified
     Dosage: EVERY 3 WEEKS
     Route: 065

REACTIONS (2)
  - Acute myeloid leukaemia [Recovered/Resolved]
  - Myelodysplastic syndrome [Recovered/Resolved]
